FAERS Safety Report 8222914-7 (Version None)
Quarter: 2012Q1

REPORT INFORMATION
  Report Type: 
  Country: None (occurrence: None)
  Receive Date: 20120320
  Receipt Date: 20120316
  Transmission Date: 20120608
  Serious: Yes (Death)
  Sender: FDA-Public Use
  Company Number: GXKR2012DE001214

PATIENT

DRUGS (1)
  1. ASPIRIN [Suspect]
     Indication: ARTERIOSCLEROSIS
     Dosage: 100 MG, UNK
     Route: 048
     Dates: end: 20111214

REACTIONS (1)
  - SUBDURAL HAEMATOMA [None]
